FAERS Safety Report 9723286 (Version 1)
Quarter: 2013Q4

REPORT INFORMATION
  Report Type: Spontaneous
  Country: US (occurrence: US)
  Receive Date: 20131202
  Receipt Date: 20131202
  Transmission Date: 20140711
  Serious: Yes (Other)
  Sender: FDA-Public Use
  Company Number: US-BAYER-2013-144217

PATIENT
  Age: 39 Year
  Sex: Female
  Weight: 65.76 kg

DRUGS (4)
  1. ALKA-SELTZER PLUS COLD FORMULA DAY/NIGHT EFFERVESCENT COMBI DAY [Suspect]
     Indication: NASOPHARYNGITIS
     Dosage: 2 DF, PRN
     Route: 048
     Dates: start: 2012, end: 20131120
  2. ALKA-SELTZER PLUS COLD FORMULA DAY/NIGHT EFFERVESCENT COMBI NIGHT [Suspect]
     Indication: NASOPHARYNGITIS
     Dosage: 2 DF, PRN
     Route: 048
     Dates: start: 2012, end: 20131120
  3. DELSYM [Concomitant]
  4. NORGESTIMATE [Concomitant]

REACTIONS (7)
  - Hallucination [Recovered/Resolved]
  - Heart rate increased [Recovered/Resolved]
  - Nervousness [Recovered/Resolved]
  - Skin burning sensation [Recovered/Resolved]
  - Paraesthesia [Recovered/Resolved]
  - Feeling drunk [Recovered/Resolved]
  - Anxiety [Recovered/Resolved]
